FAERS Safety Report 7555222-8 (Version None)
Quarter: 2011Q2

REPORT INFORMATION
  Report Type: 
  Country: None (occurrence: None)
  Receive Date: 20110617
  Receipt Date: 20110610
  Transmission Date: 20111010
  Serious: Yes (Other)
  Sender: FDA-Public Use
  Company Number: PHHO2011FR10225

PATIENT
  Sex: Female
  Weight: 75 kg

DRUGS (1)
  1. SANDOSTATIN LAR [Suspect]
     Dosage: LP 30 EVERY 4 WEEKS
     Route: 030
     Dates: start: 20071126

REACTIONS (2)
  - DISEASE PROGRESSION [None]
  - INTRADUCTAL PAPILLARY MUCINOUS NEOPLASM [None]
